FAERS Safety Report 7951957-3 (Version None)
Quarter: 2011Q4

REPORT INFORMATION
  Report Type: 
  Country: None (occurrence: None)
  Receive Date: 20111130
  Receipt Date: 20111130
  Transmission Date: 20120403
  Serious: Yes (Hospitalization)
  Sender: FDA-Public Use
  Company Number: None

PATIENT
  Age: 55 Year
  Sex: Male
  Weight: 93.2 kg

DRUGS (2)
  1. LITHIUM CARBONATE [Suspect]
     Indication: BIPOLAR I DISORDER
     Dosage: 450 MG AT BEDTIME PO
     Route: 048
     Dates: start: 20060613
  2. DIVALPROEX SODIUM [Suspect]
     Indication: BIPOLAR I DISORDER
     Dosage: 2500 MG AT BEDTIME PO
     Route: 048
     Dates: start: 20060614, end: 20110720

REACTIONS (6)
  - CONFUSIONAL STATE [None]
  - HYPERAMMONAEMIA [None]
  - MENTAL STATUS CHANGES [None]
  - ASTHENIA [None]
  - IRRITABILITY [None]
  - TREMOR [None]
